FAERS Safety Report 23329361 (Version 1)
Quarter: 2023Q4

REPORT INFORMATION
  Report Type: Spontaneous
  Country: US (occurrence: US)
  Receive Date: 20231222
  Receipt Date: 20231222
  Transmission Date: 20240110
  Serious: Yes (Death, Hospitalization, Other)
  Sender: FDA-Public Use
  Company Number: US-ORGANON-O2312USA001830

PATIENT
  Age: 83 Year
  Sex: Male

DRUGS (7)
  1. ZETIA [Suspect]
     Active Substance: EZETIMIBE
     Dosage: UNK
     Route: 048
  2. CARVEDILOL [Suspect]
     Active Substance: CARVEDILOL
     Dosage: UNK
     Route: 048
  3. AMLODIPINE [Suspect]
     Active Substance: AMLODIPINE BESYLATE
     Dosage: UNK
     Route: 048
  4. ALCOHOL [Suspect]
     Active Substance: ALCOHOL
     Dosage: UNK
     Route: 048
  5. FUROSEMIDE [Suspect]
     Active Substance: FUROSEMIDE
     Dosage: UNK
     Route: 048
  6. SACUBITRIL\VALSARTAN [Suspect]
     Active Substance: SACUBITRIL\VALSARTAN
     Dosage: UNK
     Route: 048
  7. PRAVASTATIN [Suspect]
     Active Substance: PRAVASTATIN
     Dosage: UNK
     Route: 048

REACTIONS (1)
  - Suspected suicide [Fatal]
